FAERS Safety Report 6215190-8 (Version None)
Quarter: 2009Q2

REPORT INFORMATION
  Report Type: 
  Country: None (occurrence: None)
  Receive Date: 20090604
  Receipt Date: 20090522
  Transmission Date: 20091009
  Serious: Yes (Hospitalization, Other)
  Sender: FDA-Public Use
  Company Number: IN-BRISTOL-MYERS SQUIBB COMPANY-14637102

PATIENT
  Age: 68 Year
  Sex: Female

DRUGS (8)
  1. APIXABAN [Suspect]
     Indication: THROMBOSIS PROPHYLAXIS
     Route: 048
     Dates: start: 20090224, end: 20090513
  2. WARFARIN SODIUM [Suspect]
     Indication: THROMBOSIS PROPHYLAXIS
     Route: 048
     Dates: start: 20090224, end: 20090513
  3. PLACEBO [Suspect]
     Indication: THROMBOSIS PROPHYLAXIS
     Route: 048
     Dates: start: 20090224, end: 20090513
  4. AMLODIPINE [Concomitant]
     Dates: start: 20090224
  5. ATENOLOL [Concomitant]
     Dates: start: 20090224
  6. LANOXIN [Concomitant]
     Dates: start: 20090224
  7. ESOMEPRAZOLE MAGNESIUM [Concomitant]
     Dates: start: 20090224
  8. RAMIPRIL [Concomitant]
     Dates: start: 20090224

REACTIONS (5)
  - ASTHENIA [None]
  - CHOLELITHIASIS [None]
  - HAEMATURIA [None]
  - HYDRONEPHROSIS [None]
  - URETERIC STENOSIS [None]
